FAERS Safety Report 12523622 (Version 1)
Quarter: 2016Q3

REPORT INFORMATION
  Report Type: Report from Study
  Country: US (occurrence: US)
  Receive Date: 20160703
  Receipt Date: 20160703
  Transmission Date: 20161109
  Serious: No
  Sender: FDA-Public Use
  Company Number: US-AMGEN-USASL2016085394

PATIENT
  Age: 44 Year
  Sex: Female

DRUGS (1)
  1. ENBREL [Suspect]
     Active Substance: ETANERCEPT
     Indication: TAKAYASU^S ARTERITIS
     Dosage: 50 MG, QWK
     Route: 065

REACTIONS (1)
  - Off label use [Unknown]
